FAERS Safety Report 16378082 (Version 1)
Quarter: 2019Q2

REPORT INFORMATION
  Report Type: Spontaneous
  Country: US (occurrence: US)
  Receive Date: 20190531
  Receipt Date: 20190531
  Transmission Date: 20190711
  Serious: No
  Sender: FDA-Public Use
  Company Number: US-OSMOTICA_PHARMACEUTICAL_US_LLC-POI0573201900108

PATIENT
  Age: 71 Year
  Sex: Male

DRUGS (2)
  1. OSMOLEX ER [Suspect]
     Active Substance: AMANTADINE
     Indication: PARKINSON^S DISEASE
     Dates: start: 20190124, end: 20190221
  2. OSMOLEX ER [Suspect]
     Active Substance: AMANTADINE
     Dates: start: 20190201, end: 20190221

REACTIONS (6)
  - Abnormal dreams [Unknown]
  - Fall [Unknown]
  - Muscular weakness [Unknown]
  - Hallucination [Unknown]
  - Mobility decreased [Unknown]
  - Choking [Unknown]

NARRATIVE: CASE EVENT DATE: 201902
